FAERS Safety Report 9368216 (Version 1)
Quarter: 2013Q2

REPORT INFORMATION
  Report Type: Spontaneous
  Country: US (occurrence: US)
  Receive Date: 20130625
  Receipt Date: 20130625
  Transmission Date: 20140414
  Serious: No
  Sender: FDA-Public Use
  Company Number: US-ASTELLAS-2013US003777

PATIENT
  Age: 86 Year
  Sex: Female

DRUGS (1)
  1. VESICARE [Suspect]
     Indication: POLLAKIURIA
     Dosage: 1/2 OF A 10 MG TABLET DAILY
     Route: 048
     Dates: start: 20130318, end: 20130327

REACTIONS (4)
  - Drug ineffective [Unknown]
  - Wrong technique in drug usage process [Unknown]
  - Dizziness [Unknown]
  - Dry mouth [Unknown]
